FAERS Safety Report 4348334-3 (Version None)
Quarter: 2004Q2

REPORT INFORMATION
  Report Type: 
  Country: None (occurrence: None)
  Receive Date: 20040422
  Receipt Date: 20040406
  Transmission Date: 20050107
  Serious: Yes (Hospitalization)
  Sender: FDA-Public Use
  Company Number: FR_040403887

PATIENT
  Age: 60 Year
  Sex: Male

DRUGS (4)
  1. GEMZAR [Suspect]
     Indication: PANCREATIC CARCINOMA
     Dosage: 1 DEG FORM/2 OTHER
     Route: 050
     Dates: start: 20040210, end: 20040225
  2. TAXOTERE [Concomitant]
  3. VOGALENE (METOPIMAZINE) [Concomitant]
  4. ZOPHREN (ONDANSETRON HYDROCHLORIDE) [Concomitant]

REACTIONS (4)
  - ANXIETY [None]
  - ASTHENIA [None]
  - HICCUPS [None]
  - SLEEP DISORDER [None]
